FAERS Safety Report 15248033 (Version 1)
Quarter: 2018Q3

REPORT INFORMATION
  Report Type: Spontaneous
  Country: US (occurrence: US)
  Receive Date: 20180714
  Receipt Date: 20180714
  Transmission Date: 20181010
  Serious: No
  Sender: FDA-Public Use
  Company Number: None

PATIENT
  Age: 44 Year
  Sex: Female

DRUGS (1)
  1. REBIF [Suspect]
     Active Substance: INTERFERON BETA-1A
     Indication: MULTIPLE SCLEROSIS
     Route: 058
     Dates: start: 20180428

REACTIONS (7)
  - Diplopia [None]
  - Pain [None]
  - Influenza like illness [None]
  - Drug dose omission [None]
  - Balance disorder [None]
  - Kidney infection [None]
  - Fall [None]

NARRATIVE: CASE EVENT DATE: 20180627
